FAERS Safety Report 6209696-5 (Version None)
Quarter: 2009Q2

REPORT INFORMATION
  Report Type: 
  Country: None (occurrence: None)
  Receive Date: 20090601
  Receipt Date: 20090527
  Transmission Date: 20091009
  Serious: Yes (Other)
  Sender: FDA-Public Use
  Company Number: US-B.I. PHARMACEUTICALS,INC./RIDGEFIELD-2009-BP-06505BP

PATIENT

DRUGS (1)
  1. AGGRENOX [Suspect]
     Indication: HEMIPARESIS

REACTIONS (2)
  - GASTRIC CANCER [None]
  - HAEMOGLOBIN DECREASED [None]
